FAERS Safety Report 6289203-1 (Version None)
Quarter: 2009Q3

REPORT INFORMATION
  Report Type: 
  Country: None (occurrence: None)
  Receive Date: 20090728
  Receipt Date: 20090717
  Transmission Date: 20100115
  Serious: Yes (Hospitalization)
  Sender: FDA-Public Use
  Company Number: OMPQ-NO-0907S-0681

PATIENT
  Age: 66 Year
  Sex: Male

DRUGS (12)
  1. OMNIPAQUE 300 [Suspect]
     Indication: ANGINA PECTORIS
     Dosage: I.A.
     Route: 013
     Dates: start: 20090617, end: 20090617
  2. TIGASON [Concomitant]
  3. NEORAL [Concomitant]
  4. MITINIGLIDE CALCIUM HYDRATE (GLUFAST) [Concomitant]
  5. LOCHOL [Concomitant]
  6. TAMSULOSIN HYDROCHLORIDE [Concomitant]
  7. ZYLORIC [Concomitant]
  8. GASTER D [Concomitant]
  9. PROMAC D [Concomitant]
  10. ASPIRIN [Concomitant]
  11. AMLODIN OD [Concomitant]
  12. PLAVIX [Concomitant]

REACTIONS (2)
  - DISEASE RECURRENCE [None]
  - PUSTULAR PSORIASIS [None]
